FAERS Safety Report 11269801 (Version 3)
Quarter: 2015Q4

REPORT INFORMATION
  Report Type: Spontaneous
  Country: US (occurrence: US)
  Receive Date: 20150714
  Receipt Date: 20151116
  Transmission Date: 20160304
  Serious: Yes (Other)
  Sender: FDA-Public Use
  Company Number: US-PFIZER INC-2015227948

PATIENT
  Age: 88 Year
  Sex: Female
  Weight: 48 kg

DRUGS (3)
  1. LATANOPROST. [Suspect]
     Active Substance: LATANOPROST
     Dosage: 1 GTT IN EACH EYE, DAILY
     Route: 047
     Dates: start: 2010
  2. ZOLAMIDE [Concomitant]
     Active Substance: ACETAZOLAMIDE
     Dosage: 1 GTT IN EACH EYE, 2X/DAY (ONE IN THE MORNING AND ONE IN NIGHT)
     Route: 047
  3. DORZOLAMIDE [Concomitant]
     Active Substance: DORZOLAMIDE
     Dosage: TWO GTT IN EACH EYE, DAILY
     Route: 047

REACTIONS (3)
  - Cardiac operation [Unknown]
  - Drug dose omission [Unknown]
  - Product quality issue [Unknown]
